FAERS Safety Report 25776348 (Version 1)
Quarter: 2025Q3

REPORT INFORMATION
  Report Type: Spontaneous
  Country: US (occurrence: US)
  Receive Date: 20250909
  Receipt Date: 20250909
  Transmission Date: 20251020
  Serious: No
  Sender: DOMPE FARMACEUTICI
  Company Number: US-FARMAPROD-202502-0604

PATIENT
  Age: 82 Year
  Sex: Female

DRUGS (16)
  1. OXERVATE [Suspect]
     Active Substance: CENEGERMIN-BKBJ
     Indication: Neurotrophic keratopathy
     Route: 047
     Dates: start: 20250215
  2. PREDNISOLONE [Concomitant]
     Active Substance: PREDNISOLONE
  3. HYALURONIC ACID-VITAMIN C [Concomitant]
  4. PSYLLIUM FIBER [Concomitant]
     Active Substance: PSYLLIUM HUSK
  5. OREGANO LEAF OIL [Concomitant]
     Active Substance: OREGANO LEAF OIL
  6. BIOTIN [Concomitant]
     Active Substance: BIOTIN
  7. DIETARY SUPPLEMENT\PROBIOTICS [Concomitant]
     Active Substance: DIETARY SUPPLEMENT\PROBIOTICS NOS
  8. FLAXSEED [Concomitant]
     Active Substance: FLAX SEED
  9. LYSINE [Concomitant]
     Active Substance: LYSINE
  10. VITAMIN C [Concomitant]
     Active Substance: ASCORBIC ACID
  11. VITAMIN E [Concomitant]
     Active Substance: .ALPHA.-TOCOPHEROL
  12. GABAPENTIN [Concomitant]
     Active Substance: GABAPENTIN
  13. AZATHIOPRINE [Concomitant]
     Active Substance: AZATHIOPRINE
  14. PREDNISONE [Concomitant]
     Active Substance: PREDNISONE
  15. VALACYCLOVIR [Concomitant]
     Active Substance: VALACYCLOVIR HYDROCHLORIDE
  16. CIPROFLOXACIN HYDROCHLORIDE [Concomitant]
     Active Substance: CIPROFLOXACIN HYDROCHLORIDE

REACTIONS (1)
  - Product dose omission issue [Unknown]

NARRATIVE: CASE EVENT DATE: 20250215
